FAERS Safety Report 6315986-8 (Version None)
Quarter: 2009Q3

REPORT INFORMATION
  Report Type: 
  Country: None (occurrence: None)
  Receive Date: 20090819
  Receipt Date: 20090819
  Transmission Date: 20100115
  Serious: No
  Sender: FDA-Public Use
  Company Number: None

PATIENT
  Age: 65 Year
  Sex: Female
  Weight: 56.6996 kg

DRUGS (1)
  1. VENTOLIN HFA [Suspect]
     Indication: WHEEZING
     Dosage: 2 PUFFS 4 TIMES A DAY PO
     Route: 048
     Dates: start: 20090110, end: 20090610

REACTIONS (3)
  - CHEST DISCOMFORT [None]
  - PRODUCT QUALITY ISSUE [None]
  - WHEEZING [None]
